APPROVED DRUG PRODUCT: OXYCODONE HYDROCHLORIDE
Active Ingredient: OXYCODONE HYDROCHLORIDE
Strength: 5MG
Dosage Form/Route: CAPSULE;ORAL
Application: A203107 | Product #001
Applicant: DR REDDYS LABORATORIES SA
Approved: Jul 26, 2012 | RLD: No | RS: No | Type: DISCN